FAERS Safety Report 6832242-X (Version None)
Quarter: 2010Q2

REPORT INFORMATION
  Report Type: 
  Country: None (occurrence: None)
  Receive Date: 20100629
  Receipt Date: 20100615
  Transmission Date: 20101027
  Serious: Yes (Other)
  Sender: FDA-Public Use
  Company Number: AEUSA201000224

PATIENT
  Age: 45 Year
  Sex: Male
  Weight: 90.7194 kg

DRUGS (7)
  1. GAMUNEX [Suspect]
     Indication: BLOOD IMMUNOGLOBULIN G
     Dosage: 40 GM; QOW; IV
     Route: 042
     Dates: start: 20030101
  2. GAMUNEX [Suspect]
     Indication: THROMBOCYTOPENIA
     Dosage: 40 GM; QOW; IV
     Route: 042
     Dates: start: 20030101
  3. IMMUNE GLOBULIN (HUMAN) [Suspect]
     Indication: BLOOD IMMUNOGLOBULIN G
     Dosage: 40 GM; QOW; IV
     Route: 042
     Dates: start: 19970101, end: 20030101
  4. IMMUNE GLOBULIN (HUMAN) [Suspect]
     Indication: THROMBOCYTOPENIA
     Dosage: 40 GM; QOW; IV
     Route: 042
     Dates: start: 19970101, end: 20030101
  5. SEROSTIM [Concomitant]
  6. ANTIVIRALS NOS [Concomitant]
  7. TESTOSTERONE [Concomitant]

REACTIONS (1)
  - BLOOD CREATINE PHOSPHOKINASE INCREASED [None]
